FAERS Safety Report 20168685 (Version 1)
Quarter: 2021Q4

REPORT INFORMATION
  Report Type: Spontaneous
  Country: US (occurrence: US)
  Receive Date: 20211210
  Receipt Date: 20211210
  Transmission Date: 20220303
  Serious: Yes (Hospitalization, Other)
  Sender: FDA-Public Use
  Company Number: US-VIWITPHARMA-2021VWTLIT00023

PATIENT
  Age: 2 Year
  Sex: Female

DRUGS (10)
  1. LEVETIRACETAM [Suspect]
     Active Substance: LEVETIRACETAM
     Indication: Epilepsy
     Dosage: 27 MG/KG/DAY
     Route: 065
  2. LEVETIRACETAM [Suspect]
     Active Substance: LEVETIRACETAM
     Dosage: 50 MG/KG/DAY
     Route: 065
  3. LEVETIRACETAM [Suspect]
     Active Substance: LEVETIRACETAM
     Dosage: 100 MG/KG/DAY
     Route: 065
  4. MIDAZOLAM [Concomitant]
     Active Substance: MIDAZOLAM
     Indication: Epilepsy
     Route: 065
  5. MIDAZOLAM [Concomitant]
     Active Substance: MIDAZOLAM
     Dosage: RESTARTED
     Route: 065
  6. VALPROIC ACID [Interacting]
     Active Substance: VALPROIC ACID
     Indication: Epilepsy
     Route: 065
  7. CLOBAZAM [Interacting]
     Active Substance: CLOBAZAM
     Indication: Epilepsy
     Route: 065
  8. CLOBAZAM [Interacting]
     Active Substance: CLOBAZAM
     Dosage: DOSE INCREASED
     Route: 065
  9. LORAZEPAM [Interacting]
     Active Substance: LORAZEPAM
     Indication: Epilepsy
     Route: 065
  10. PENTOBARBITAL [Interacting]
     Active Substance: PENTOBARBITAL
     Indication: Epilepsy
     Route: 065

REACTIONS (4)
  - Drug resistance [Unknown]
  - Status epilepticus [Unknown]
  - Partial seizures [Unknown]
  - Seizure cluster [Recovered/Resolved]
